FAERS Safety Report 26153503 (Version 2)
Quarter: 2025Q4

REPORT INFORMATION
  Report Type: Spontaneous
  Country: AU (occurrence: AU)
  Receive Date: 20251214
  Receipt Date: 20251229
  Transmission Date: 20260118
  Serious: Yes (Hospitalization, Other)
  Sender: ROCHE
  Company Number: AU-ROCHE-10000456093

PATIENT
  Age: 80 Year
  Sex: Male

DRUGS (4)
  1. ATEZOLIZUMAB [Suspect]
     Active Substance: ATEZOLIZUMAB
     Indication: Small cell lung cancer extensive stage
     Dosage: CYCLE 2 ONWARDS TILL CYCLE 22
  2. ATEZOLIZUMAB [Suspect]
     Active Substance: ATEZOLIZUMAB
     Dosage: RECHALLENGED 2 MONTHS LATER; 3 CYCLES
  3. CARBOPLATIN [Concomitant]
     Active Substance: CARBOPLATIN
     Indication: Small cell lung cancer extensive stage
     Dosage: (CYCLE 1)
  4. ETOPOSIDE [Concomitant]
     Active Substance: ETOPOSIDE
     Indication: Small cell lung cancer extensive stage
     Dosage: (CYCLE 1)

REACTIONS (3)
  - Immune-mediated lung disease [Recovered/Resolved]
  - Hypoxia [Recovered/Resolved]
  - Hyperthyroidism [Unknown]
